FAERS Safety Report 6065165-7 (Version None)
Quarter: 2009Q1

REPORT INFORMATION
  Report Type: 
  Country: None (occurrence: None)
  Receive Date: 20090204
  Receipt Date: 20090122
  Transmission Date: 20090719
  Serious: Yes (Hospitalization)
  Sender: FDA-Public Use
  Company Number: JP-ROCHE-583034

PATIENT
  Sex: Female

DRUGS (9)
  1. PEGASYS [Suspect]
     Indication: HEPATITIS C
     Route: 058
     Dates: start: 20070521, end: 20080311
  2. PEGASYS [Suspect]
     Route: 058
     Dates: start: 20080325, end: 20080325
  3. COPEGUS [Suspect]
     Indication: HEPATITIS C
     Route: 048
     Dates: start: 20070521, end: 20071218
  4. COPEGUS [Suspect]
     Route: 048
     Dates: start: 20071219, end: 20080318
  5. COPEGUS [Suspect]
     Route: 048
     Dates: start: 20080325, end: 20080331
  6. MEDICON [Concomitant]
     Route: 048
     Dates: start: 20071218
  7. DEPAS [Concomitant]
     Route: 048
     Dates: start: 20070801
  8. MAGLAX [Concomitant]
     Route: 048
     Dates: start: 20070815
  9. MUCOSTA [Concomitant]
     Route: 048
     Dates: start: 20070910

REACTIONS (2)
  - ANAEMIA [None]
  - POLYMYOSITIS [None]
